FAERS Safety Report 22778889 (Version 3)
Quarter: 2023Q4

REPORT INFORMATION
  Report Type: Spontaneous
  Country: IN (occurrence: IN)
  Receive Date: 20230802
  Receipt Date: 20231001
  Transmission Date: 20240110
  Serious: Yes (Other)
  Sender: FDA-Public Use
  Company Number: IN-PFIZER INC-PV202300110318

PATIENT
  Age: 63 Year
  Sex: Female

DRUGS (2)
  1. LORLATINIB [Suspect]
     Active Substance: LORLATINIB
     Indication: Non-small cell lung cancer metastatic
     Dosage: 100 MG
     Route: 048
     Dates: start: 202211
  2. LORLATINIB [Suspect]
     Active Substance: LORLATINIB
     Dosage: 75 MG, 1X/DAY
     Route: 048

REACTIONS (5)
  - Subdural haematoma [Recovered/Resolved]
  - Hallucination [Unknown]
  - Fatigue [Unknown]
  - Confusional state [Unknown]
  - General physical health deterioration [Not Recovered/Not Resolved]
